FAERS Safety Report 25035915 (Version 1)
Quarter: 2025Q1

REPORT INFORMATION
  Report Type: Spontaneous
  Country: US (occurrence: US)
  Receive Date: 20250304
  Receipt Date: 20250304
  Transmission Date: 20250409
  Serious: No
  Sender: INVENTIA HEALTHCARE PRIVATE LIMITED
  Company Number: US-Inventia-000748

PATIENT
  Age: 81 Year
  Sex: Female
  Weight: 71.21 kg

DRUGS (4)
  1. METFORMIN HYDROCHLORIDE [Suspect]
     Active Substance: METFORMIN HYDROCHLORIDE
     Indication: Diabetes mellitus
     Dosage: STRENGTH: 500 MG/ 1 PILL A DAY IN EVERY NOON?EXTENDED-RELEASE TABLETS
     Route: 048
     Dates: start: 20240816, end: 20240904
  2. SPIRONOLACTONE [Concomitant]
     Active Substance: SPIRONOLACTONE
     Indication: Hypertension
  3. ASPIRIN [Concomitant]
     Active Substance: ASPIRIN
  4. VITAMIN D3 [Concomitant]
     Active Substance: CHOLECALCIFEROL

REACTIONS (4)
  - Dizziness [Unknown]
  - Eye disorder [Unknown]
  - Diarrhoea [Unknown]
  - Limb discomfort [Unknown]
